FAERS Safety Report 18347023 (Version 1)
Quarter: 2020Q4

REPORT INFORMATION
  Report Type: Spontaneous
  Country: US (occurrence: US)
  Receive Date: 20201006
  Receipt Date: 20201006
  Transmission Date: 20210114
  Serious: Yes (Life-Threatening, Hospitalization, Other)
  Sender: FDA-Public Use
  Company Number: US-LUPIN PHARMACEUTICALS INC.-2020-07037

PATIENT
  Sex: Male

DRUGS (2)
  1. METFORMIN [Suspect]
     Active Substance: METFORMIN HYDROCHLORIDE
     Dosage: 2000 MILLIGRAM, QD, AT 17 WEEKS OF GESTATION
     Route: 064
  2. METFORMIN [Suspect]
     Active Substance: METFORMIN HYDROCHLORIDE
     Indication: GESTATIONAL DIABETES
     Dosage: 1000 MILLIGRAM, QD, AT 14 WEEKS OF GESTATION
     Route: 064

REACTIONS (4)
  - Pulmonary hypertension [Recovered/Resolved]
  - Acute respiratory failure [Unknown]
  - Foetal exposure during pregnancy [Unknown]
  - Alveolar capillary dysplasia [Unknown]
